FAERS Safety Report 8159007-3 (Version None)
Quarter: 2012Q1

REPORT INFORMATION
  Report Type: 
  Country: None (occurrence: None)
  Receive Date: 20120223
  Receipt Date: 20120216
  Transmission Date: 20120608
  Serious: No
  Sender: FDA-Public Use
  Company Number: US-B.I. PHARMACEUTICALS,INC./RIDGEFIELD-2011-BP-28931BP

PATIENT
  Sex: Female

DRUGS (5)
  1. MULTAQ [Concomitant]
     Indication: ATRIAL FIBRILLATION
     Dosage: 800 MG
     Route: 048
  2. PRADAXA [Suspect]
     Dosage: 150 MG
     Route: 048
     Dates: start: 20111226, end: 20120116
  3. PRADAXA [Suspect]
     Indication: ATRIAL FIBRILLATION
     Dosage: 300 MG
     Route: 048
     Dates: start: 20100101, end: 20111215
  4. CRESTOR [Concomitant]
     Indication: BLOOD CHOLESTEROL INCREASED
     Dosage: 10 MG
     Route: 048
  5. LEVOTHYROXINE SODIUM [Concomitant]
     Indication: HYPOTHYROIDISM
     Dosage: 100 MCG
     Route: 048

REACTIONS (8)
  - HAEMORRHAGE SUBCUTANEOUS [None]
  - OEDEMA PERIPHERAL [None]
  - HAEMOPTYSIS [None]
  - CONTUSION [None]
  - PAIN IN EXTREMITY [None]
  - HAEMORRHAGE [None]
  - INJURY [None]
  - EPISTAXIS [None]
